FAERS Safety Report 8847883 (Version 2)
Quarter: 2013Q1

REPORT INFORMATION
  Report Type: Spontaneous
  Country: US (occurrence: US)
  Receive Date: 20121018
  Receipt Date: 20130114
  Transmission Date: 20140127
  Serious: Yes (Other)
  Sender: FDA-Public Use
  Company Number: US-JNJFOC-20121008826

PATIENT
  Sex: Male

DRUGS (1)
  1. STELARA [Suspect]
     Indication: PSORIASIS
     Dosage: THE PATIENT DID NOT RECEIVED 2 DOSE
     Route: 058
     Dates: start: 20121011

REACTIONS (1)
  - HIV test positive [Not Recovered/Not Resolved]
